FAERS Safety Report 18125339 (Version 2)
Quarter: 2020Q3

REPORT INFORMATION
  Report Type: Spontaneous
  Country: US (occurrence: US)
  Receive Date: 20200807
  Receipt Date: 20200810
  Transmission Date: 20201103
  Serious: No
  Sender: FDA-Public Use
  Company Number: US-TEVA-2020-US-1810616

PATIENT
  Age: 82 Year
  Sex: Female

DRUGS (1)
  1. CARBIDOPA AND LEVODOPA ACTAVIS [Suspect]
     Active Substance: CARBIDOPA\LEVODOPA
     Indication: PARKINSON^S DISEASE
     Dosage: USING TEVAS PRODUCT FOR MANY YEARS; 25 MG / 100 MG; A DOSE OF THE PRODUCT STARTING AT 8 AM EVERY 2 H
     Route: 065
     Dates: start: 2018

REACTIONS (8)
  - Dizziness [Not Recovered/Not Resolved]
  - Feeling abnormal [Unknown]
  - Product dose omission issue [Unknown]
  - Asthenia [Unknown]
  - Speech disorder [Unknown]
  - Vision blurred [Not Recovered/Not Resolved]
  - Product substitution issue [Unknown]
  - Tremor [Unknown]

NARRATIVE: CASE EVENT DATE: 2018
